FAERS Safety Report 10378573 (Version 2)
Quarter: 2014Q3

REPORT INFORMATION
  Report Type: Spontaneous
  Country: NO (occurrence: NO)
  Receive Date: 20140812
  Receipt Date: 20140826
  Transmission Date: 20150326
  Serious: Yes (Disabling)
  Sender: FDA-Public Use
  Company Number: NO-ELI_LILLY_AND_COMPANY-NO201408001771

PATIENT
  Sex: Female

DRUGS (2)
  1. FLUOXETINE [Suspect]
     Active Substance: FLUOXETINE\FLUOXETINE HYDROCHLORIDE
     Indication: DEPRESSION
     Dosage: 25 TABLETS FONTEX 20 MG PER DAY (500 MG DAILY)
     Route: 048
     Dates: start: 201404, end: 201406
  2. FLUOXETINE [Suspect]
     Active Substance: FLUOXETINE\FLUOXETINE HYDROCHLORIDE
     Dosage: 500 MG, QD
     Route: 048
     Dates: start: 201404, end: 201406

REACTIONS (8)
  - Fall [Recovering/Resolving]
  - Drug abuse [Unknown]
  - Gait disturbance [Recovering/Resolving]
  - Tremor [Recovering/Resolving]
  - Motor dysfunction [Recovering/Resolving]
  - Balance disorder [Recovering/Resolving]
  - Intentional overdose [Unknown]
  - Cognitive disorder [Recovering/Resolving]
